FAERS Safety Report 22849856 (Version 3)
Quarter: 2023Q4

REPORT INFORMATION
  Report Type: Spontaneous
  Country: FR (occurrence: FR)
  Receive Date: 20230822
  Receipt Date: 20231212
  Transmission Date: 20240110
  Serious: Yes (Other)
  Sender: FDA-Public Use
  Company Number: FR-AMGEN-FRASP2023146332

PATIENT
  Age: 62 Year
  Sex: Female
  Weight: 39 kg

DRUGS (6)
  1. LUMAKRAS [Suspect]
     Active Substance: SOTORASIB
     Indication: Lung adenocarcinoma
     Dosage: 960 MILLIGRAM, QD (8 TABLETS)
     Route: 048
     Dates: start: 20221201, end: 20230130
  2. LUMAKRAS [Suspect]
     Active Substance: SOTORASIB
     Indication: K-ras gene mutation
  3. ACETAMINOPHEN [Concomitant]
     Active Substance: ACETAMINOPHEN
  4. SKENAN [Concomitant]
     Active Substance: MORPHINE SULFATE
     Dosage: 30 MILLIGRAM, MORNING AND EVENING
  5. MORPHINE SULFATE [Concomitant]
     Active Substance: MORPHINE SULFATE
     Dosage: 10
  6. BACTRIM [Concomitant]
     Active Substance: SULFAMETHOXAZOLE\TRIMETHOPRIM

REACTIONS (2)
  - Thoracic vertebral fracture [Unknown]
  - Metastatic bronchial carcinoma [Not Recovered/Not Resolved]

NARRATIVE: CASE EVENT DATE: 20230124
